FAERS Safety Report 5057758-0 (Version None)
Quarter: 2006Q3

REPORT INFORMATION
  Report Type: 
  Country: None (occurrence: None)
  Receive Date: 20060721
  Receipt Date: 20060207
  Transmission Date: 20061208
  Serious: No
  Sender: FDA-Public Use
  Company Number: US-GLAXOSMITHKLINE-A0592650A

PATIENT
  Age: 44 Year
  Sex: Female

DRUGS (4)
  1. AVANDIA [Suspect]
     Dosage: 4MG PER DAY
     Route: 048
     Dates: start: 20050707
  2. GLUCOPHAGE XR [Concomitant]
  3. BYETTA [Concomitant]
  4. B12 [Concomitant]

REACTIONS (5)
  - FATIGUE [None]
  - LOSS OF EMPLOYMENT [None]
  - PALPITATIONS [None]
  - SWELLING [None]
  - WEIGHT INCREASED [None]
